FAERS Safety Report 24221416 (Version 6)
Quarter: 2024Q4

REPORT INFORMATION
  Report Type: Spontaneous
  Country: DE (occurrence: DE)
  Receive Date: 20240819
  Receipt Date: 20241004
  Transmission Date: 20250115
  Serious: Yes (Hospitalization, Disabling)
  Sender: ROCHE
  Company Number: DE-002147023-NVSC2024DE164411

PATIENT
  Age: 77 Year
  Sex: Male

DRUGS (3)
  1. LUCENTIS [Suspect]
     Active Substance: RANIBIZUMAB
     Indication: Age-related macular degeneration
     Dosage: UNK (OVER 80 INJECTIONS MOST RECENTLY AT 3-MONTH INTERVALS)
     Route: 065
  2. LUCENTIS [Suspect]
     Active Substance: RANIBIZUMAB
     Dosage: UNK (IN EVERY THREE MONTHS)
     Route: 050
     Dates: end: 20240806
  3. LUCENTIS [Suspect]
     Active Substance: RANIBIZUMAB
     Dosage: UNK (OVER 80 INJECTIONS MOST RECENTLY AT 3-MONTH INTERVALS)
     Route: 050

REACTIONS (8)
  - Choroidal haemorrhage [Unknown]
  - Amaurosis [Unknown]
  - Blindness unilateral [Unknown]
  - Ulcerative keratitis [Unknown]
  - Corneal oedema [Unknown]
  - Eye pain [Unknown]
  - Intraocular pressure increased [Unknown]
  - Visual impairment [Unknown]

NARRATIVE: CASE EVENT DATE: 20240806
